FAERS Safety Report 5546464-1 (Version None)
Quarter: 2007Q4

REPORT INFORMATION
  Report Type: 
  Country: None (occurrence: None)
  Receive Date: 20071211
  Receipt Date: 20070208
  Transmission Date: 20080405
  Serious: No
  Sender: FDA-Public Use
  Company Number: US-AMGEN-KDL210504

PATIENT
  Sex: Female

DRUGS (5)
  1. ENBREL [Suspect]
     Indication: PSORIATIC ARTHROPATHY
     Route: 058
     Dates: start: 20061010
  2. METHOTREXATE [Concomitant]
     Dates: start: 20000101
  3. IBUPROFEN [Concomitant]
  4. FOLIC ACID [Concomitant]
  5. UNSPECIFIED MEDICATION [Concomitant]

REACTIONS (2)
  - CONTUSION [None]
  - INJECTION SITE BRUISING [None]
